FAERS Safety Report 5050853-1 (Version None)
Quarter: 2006Q3

REPORT INFORMATION
  Report Type: 
  Country: None (occurrence: None)
  Receive Date: 20060710
  Receipt Date: 20060628
  Transmission Date: 20061208
  Serious: Yes (Hospitalization)
  Sender: FDA-Public Use
  Company Number: 2006077332

PATIENT
  Age: 75 Year
  Sex: Female
  Weight: 68 kg

DRUGS (1)
  1. ARTROTEC (DICLOFENAC SODIUM, MISOPROSTOL) [Suspect]
     Indication: BACK PAIN
     Dosage: 50 MG (FREQUENCY: DAILY), ORAL
     Route: 048
     Dates: start: 20060617

REACTIONS (3)
  - HYPERSENSITIVITY [None]
  - LOSS OF CONSCIOUSNESS [None]
  - PARAESTHESIA [None]
